FAERS Safety Report 5120642-8 (Version None)
Quarter: 2006Q4

REPORT INFORMATION
  Report Type: 
  Country: None (occurrence: None)
  Receive Date: 20061002
  Receipt Date: 20060908
  Transmission Date: 20070319
  Serious: Yes (Other)
  Sender: FDA-Public Use
  Company Number: 2006SP002247

PATIENT
  Age: 51 Year
  Sex: Male

DRUGS (1)
  1. REBETRON (INTERFERON ALFA-2B  W/  RIBAVIRIN) (INTERFERON ALFA-2B  W/ [Suspect]
     Indication: HEPATITIS C

REACTIONS (2)
  - ALANINE AMINOTRANSFERASE INCREASED [None]
  - DIFFUSE LARGE B-CELL LYMPHOMA [None]
